FAERS Safety Report 8323171-3 (Version None)
Quarter: 2012Q2

REPORT INFORMATION
  Report Type: 
  Country: None (occurrence: None)
  Receive Date: 20120430
  Receipt Date: 20120418
  Transmission Date: 20120825
  Serious: Yes (Death)
  Sender: FDA-Public Use
  Company Number: US-MYLANLABS-2009S1008059

PATIENT
  Age: 56 Year
  Sex: Male
  Weight: 102.97 kg

DRUGS (4)
  1. FENTANYL-100 [Suspect]
  2. FENTANYL-100 [Suspect]
     Indication: BACK PAIN
     Dosage: Q48H
     Dates: end: 20090301
  3. FENTANYL-100 [Suspect]
     Indication: PAIN
     Dosage: Q48H
     Dates: end: 20090301
  4. FENTANYL-100 [Suspect]

REACTIONS (4)
  - OVERDOSE [None]
  - TOXICITY TO VARIOUS AGENTS [None]
  - INCORRECT ROUTE OF DRUG ADMINISTRATION [None]
  - INTENTIONAL DRUG MISUSE [None]
